FAERS Safety Report 16703724 (Version 1)
Quarter: 2019Q3

REPORT INFORMATION
  Report Type: Spontaneous
  Country: CN (occurrence: CN)
  Receive Date: 20190814
  Receipt Date: 20190814
  Transmission Date: 20191004
  Serious: Yes (Hospitalization, Other)
  Sender: FDA-Public Use
  Company Number: CN-PFIZER INC-2019347975

PATIENT
  Age: 13 Year
  Sex: Male

DRUGS (2)
  1. METHOTREXATE SODIUM. [Suspect]
     Active Substance: METHOTREXATE SODIUM
     Dosage: 5G/ M2, OF WHICH 0.5 G FOR 30 MIN AS A PULSE DOSE, AND THE REST IN THE FOLLOWING 23.5 HOURS
     Route: 041
  2. METHOTREXATE SODIUM. [Suspect]
     Active Substance: METHOTREXATE SODIUM
     Indication: ACUTE LYMPHOCYTIC LEUKAEMIA
     Dosage: UNK, SINGLE
     Route: 037

REACTIONS (3)
  - Acute kidney injury [Recovered/Resolved]
  - Drug clearance decreased [Recovered/Resolved]
  - Toxicity to various agents [Recovered/Resolved]
